FAERS Safety Report 13804956 (Version 1)
Quarter: 2017Q3

REPORT INFORMATION
  Report Type: Spontaneous
  Country: US (occurrence: US)
  Receive Date: 20170728
  Receipt Date: 20170728
  Transmission Date: 20171127
  Serious: No
  Sender: FDA-Public Use
  Company Number: US-ABBVIE-17P-163-1906877-00

PATIENT
  Age: 76 Year
  Sex: Male

DRUGS (2)
  1. XTANDI [Interacting]
     Active Substance: ENZALUTAMIDE
     Indication: PROSTATE CANCER
     Route: 048
     Dates: start: 20160610
  2. LEVOTHYROXINE. [Suspect]
     Active Substance: LEVOTHYROXINE
     Indication: PRODUCT USED FOR UNKNOWN INDICATION
     Route: 065

REACTIONS (3)
  - Amnesia [Unknown]
  - Blood thyroid stimulating hormone increased [Unknown]
  - Drug interaction [Unknown]

NARRATIVE: CASE EVENT DATE: 2016
